FAERS Safety Report 13793657 (Version 1)
Quarter: 2017Q3

REPORT INFORMATION
  Report Type: Spontaneous
  Country: FR (occurrence: FR)
  Receive Date: 20170726
  Receipt Date: 20170726
  Transmission Date: 20171127
  Serious: Yes (Other)
  Sender: FDA-Public Use
  Company Number: FR-009507513-1707FRA010351

PATIENT
  Age: 68 Year
  Sex: Female

DRUGS (9)
  1. NOVATREX (METHOTREXATE) [Concomitant]
     Active Substance: METHOTREXATE SODIUM
     Dosage: 3 TABLETS WEEKLY EVERY FRIDAY EVENING
  2. KEYTRUDA [Suspect]
     Active Substance: PEMBROLIZUMAB
     Indication: MALIGNANT MELANOMA
     Dosage: UNK
     Dates: start: 20160803
  3. PREVISCAN [Concomitant]
     Active Substance: FLUINDIONE
     Dosage: 1/4 TABLET AT THE EVENING
  4. SIMVASTATIN. [Concomitant]
     Active Substance: SIMVASTATIN
     Dosage: 1 TABLET AT THE EVENING
  5. BETAHISTINE [Concomitant]
     Active Substance: BETAHISTINE
     Dosage: 1 TABLET AT THE MORNING AND THE EVENING
  6. CORDARONE [Concomitant]
     Active Substance: AMIODARONE HYDROCHLORIDE
     Dosage: 1 TABLET AT THE MORNING
  7. PIRACETAM [Concomitant]
     Active Substance: PIRACETAM
     Dosage: 1 TABLET AT THE EVENING
  8. SPECIAFOLDINE [Concomitant]
     Active Substance: FOLIC ACID
     Dosage: 1 TABLET THE MORNING EVERY DAY EXCEPT FRIDAY
  9. FLECAINE [Concomitant]
     Active Substance: FLECAINIDE
     Dosage: 1 TABLET AT THE MORNING

REACTIONS (2)
  - Hepatocellular injury [Recovered/Resolved]
  - Hyperthyroidism [Unknown]

NARRATIVE: CASE EVENT DATE: 20160917
